FAERS Safety Report 6163738-4 (Version None)
Quarter: 2009Q2

REPORT INFORMATION
  Report Type: 
  Country: None (occurrence: None)
  Receive Date: 20090420
  Receipt Date: 20090420
  Transmission Date: 20091009
  Serious: Yes (Hospitalization)
  Sender: FDA-Public Use
  Company Number: None

PATIENT
  Sex: Male

DRUGS (12)
  1. PEMETREXED, LILLY, 500 MG/M2 [Suspect]
     Indication: HEAD AND NECK CANCER
     Dosage: 500 MG/M2 Q 3 WKS IV
     Route: 042
     Dates: start: 20090318, end: 20090408
  2. CETUXIMAB, LILLY, 250 MG/M2 [Suspect]
     Indication: HEAD AND NECK CANCER
     Dosage: 250 MG/M2 Q 1 WK IV
     Route: 042
     Dates: start: 20090311, end: 20090415
  3. BEVACIZUMAB - GENENTECH [Suspect]
     Dosage: 15 MG/KG Q 3 WK IV
     Route: 042
  4. RADIATION THERAPY [Suspect]
  5. FOLIC ACID [Concomitant]
  6. FENTANYL [Concomitant]
  7. ROXICET [Concomitant]
  8. SENNA [Concomitant]
  9. COLACE [Concomitant]
  10. VIT B12 [Concomitant]
  11. CIPROFLOXACIN HCL [Concomitant]
  12. SYNTHROID [Concomitant]

REACTIONS (5)
  - MUCOSAL INFLAMMATION [None]
  - ORAL CANDIDIASIS [None]
  - ORAL PAIN [None]
  - OROPHARYNGEAL PAIN [None]
  - PYREXIA [None]
